FAERS Safety Report 13309590 (Version 2)
Quarter: 2017Q1

REPORT INFORMATION
  Report Type: Spontaneous
  Country: US (occurrence: US)
  Receive Date: 20170309
  Receipt Date: 20170331
  Transmission Date: 20170428
  Serious: No
  Sender: FDA-Public Use
  Company Number: ALCN2017US001852

PATIENT
  Age: 61 Year
  Sex: Female
  Weight: 53 kg

DRUGS (8)
  1. ANCEF [Concomitant]
     Active Substance: CEFAZOLIN SODIUM
     Indication: INFECTION PROPHYLAXIS
  2. EPINEPHRINE. [Concomitant]
     Active Substance: EPINEPHRINE
     Indication: MYDRIASIS
     Route: 047
  3. HYLENEX RECOMBINANT [Concomitant]
     Active Substance: HYALURONIDASE (HUMAN RECOMBINANT)
     Indication: NERVE BLOCK
     Dosage: UNK
     Route: 065
     Dates: start: 20170224
  4. GENTAMICIN. [Concomitant]
     Active Substance: GENTAMICIN
     Indication: INFECTION PROPHYLAXIS
     Route: 065
  5. MIOSTAT [Suspect]
     Active Substance: CARBACHOL
     Indication: MIOSIS
     Dosage: UNK
     Route: 031
     Dates: start: 20170224, end: 20170224
  6. MARCAINE [Concomitant]
     Active Substance: BUPIVACAINE HYDROCHLORIDE
     Indication: NERVE BLOCK
     Dosage: UNK
     Route: 065
     Dates: start: 20170124, end: 20170224
  7. LIDOCAINE. [Concomitant]
     Active Substance: LIDOCAINE
     Indication: NERVE BLOCK
     Dosage: 2 ML, UNK
     Route: 065
     Dates: start: 20170224
  8. DUOVISC [Concomitant]
     Active Substance: CHONDROITIN SULFATE A\HYALURONATE SODIUM
     Indication: INTRAOCULAR PRESSURE INCREASED
     Dosage: 0.3 ML, UNK
     Route: 065
     Dates: start: 20170224, end: 20170224

REACTIONS (1)
  - Drug ineffective [Not Recovered/Not Resolved]

NARRATIVE: CASE EVENT DATE: 20170224
